FAERS Safety Report 8245145-3 (Version None)
Quarter: 2012Q1

REPORT INFORMATION
  Report Type: 
  Country: None (occurrence: None)
  Receive Date: 20120329
  Receipt Date: 20120322
  Transmission Date: 20120608
  Serious: Yes (Other)
  Sender: FDA-Public Use
  Company Number: US-UCBSA-053946

PATIENT
  Age: 83 Year
  Sex: Male
  Weight: 40 kg

DRUGS (4)
  1. LIPITOR [Concomitant]
     Dosage: DAILY DOSE: 40 MG
  2. MAGNESIUM HYDROXIDE TAB [Concomitant]
  3. STOOL SOFTENER [Concomitant]
  4. ISOSORBIDE MONONITRATE [Suspect]
     Indication: CARDIAC DISORDER
     Dosage: DAILY DOSE: 60 MG

REACTIONS (3)
  - CONSTIPATION [None]
  - MEDICATION RESIDUE [None]
  - MALIGNANT FIBROUS HISTIOCYTOMA [None]
